FAERS Safety Report 17173258 (Version 3)
Quarter: 2020Q2

REPORT INFORMATION
  Report Type: Spontaneous
  Country: GB (occurrence: GB)
  Receive Date: 20191218
  Receipt Date: 20200402
  Transmission Date: 20200713
  Serious: Yes (Other)
  Sender: FDA-Public Use
  Company Number: GB-FERRINGPH-2019FE08265

PATIENT
  Age: 9 Year
  Sex: Female
  Weight: 24 kg

DRUGS (7)
  1. SALMETEROL [Concomitant]
     Active Substance: SALMETEROL
     Dosage: 50 UG, DAILY
     Dates: start: 20190815
  2. CLENIL MODULITE [Concomitant]
     Active Substance: BECLOMETHASONE DIPROPIONATE
     Dosage: 400 UG, 1 TIME DAILY
  3. CASSIA ALATA [Concomitant]
  4. SOMATROPIN. [Suspect]
     Active Substance: SOMATROPIN
     Indication: GROWTH RETARDATION
     Dosage: 0.8 MG
     Route: 058
     Dates: start: 20180418
  5. AZITHROMYCIN ANHYDROUS. [Concomitant]
     Active Substance: AZITHROMYCIN ANHYDROUS
     Dosage: 200 MG, WEEKLY (OR 5 TIMES WEEKLY IF UNWELL)
     Dates: start: 20190128
  6. LACTULOSE. [Concomitant]
     Active Substance: LACTULOSE
  7. SALBUTAMOL [Concomitant]
     Active Substance: ALBUTEROL
     Dosage: 100 UG, 4 TO 6 PUFFS UP TO EVERY 4 HOURS

REACTIONS (5)
  - Condition aggravated [Recovered/Resolved]
  - Granuloma [Recovered/Resolved]
  - Product use in unapproved indication [Not Recovered/Not Resolved]
  - Stress fracture [Recovered/Resolved]
  - Pain in extremity [Recovered/Resolved]

NARRATIVE: CASE EVENT DATE: 20180418
